FAERS Safety Report 4752556-7 (Version None)
Quarter: 2005Q3

REPORT INFORMATION
  Report Type: 
  Country: None (occurrence: None)
  Receive Date: 20050823
  Receipt Date: 20050811
  Transmission Date: 20060218
  Serious: Yes (Hospitalization)
  Sender: FDA-Public Use
  Company Number: 8011408

PATIENT
  Age: 38 Year
  Sex: Male

DRUGS (2)
  1. KEPPRA [Suspect]
     Indication: EPILEPSY
     Dosage: 500 MG 2/D PO
     Route: 048
     Dates: start: 20040201
  2. DEPAKENE [Suspect]
     Indication: EPILEPSY
     Dosage: 500 MG/D PO
     Route: 048

REACTIONS (3)
  - ACNE CYSTIC [None]
  - DERMATITIS ACNEIFORM [None]
  - RASH PAPULAR [None]
